FAERS Safety Report 17419540 (Version 2)
Quarter: 2020Q1

REPORT INFORMATION
  Report Type: Spontaneous
  Country: GB (occurrence: GB)
  Receive Date: 20200214
  Receipt Date: 20200228
  Transmission Date: 20200409
  Serious: Yes (Death, Hospitalization)
  Sender: FDA-Public Use
  Company Number: GB-TEVA-2020-GB-1185716

PATIENT
  Age: 61 Year
  Sex: Female

DRUGS (20)
  1. TRIFLUOPERAZINE [Concomitant]
     Active Substance: TRIFLUOPERAZINE HYDROCHLORIDE
  2. OMEPRAZOLE. [Concomitant]
     Active Substance: OMEPRAZOLE
  3. SIMVASTATIN. [Concomitant]
     Active Substance: SIMVASTATIN
  4. ADCAL-D3 [Concomitant]
     Active Substance: CALCIUM CARBONATE\CHOLECALCIFEROL
  5. SODIUM VALPROATE [Concomitant]
     Active Substance: VALPROATE SODIUM
  6. PROCYCLIDINE [Concomitant]
     Active Substance: PROCYCLIDINE
  7. METFORMIN [Suspect]
     Active Substance: METFORMIN HYDROCHLORIDE
     Indication: TYPE 2 DIABETES MELLITUS
     Dosage: 2550 MG
     Route: 048
     Dates: end: 20200124
  8. LEVOTHYROXINE. [Concomitant]
     Active Substance: LEVOTHYROXINE
  9. QUETIAPINE. [Concomitant]
     Active Substance: QUETIAPINE
  10. FOSTAIR [Concomitant]
     Active Substance: BECLOMETHASONE\FORMOTEROL
  11. PREDNISOLONE. [Concomitant]
     Active Substance: PREDNISOLONE
  12. TEMAZEPAM. [Concomitant]
     Active Substance: TEMAZEPAM
  13. DOXYCYCLINE. [Concomitant]
     Active Substance: DOXYCYCLINE
  14. SALBUTAMOL [Concomitant]
     Active Substance: ALBUTEROL
  15. RAMIPRIL. [Concomitant]
     Active Substance: RAMIPRIL
  16. GLICLAZIDE [Concomitant]
     Active Substance: GLICLAZIDE
  17. DAPAGLIFLOZIN. [Suspect]
     Active Substance: DAPAGLIFLOZIN
     Indication: TYPE 2 DIABETES MELLITUS
     Dosage: 10 MILLIGRAM DAILY; MORNING
     Route: 048
     Dates: start: 201807, end: 20200124
  18. VENLAFAXINE [Concomitant]
     Active Substance: VENLAFAXINE HYDROCHLORIDE
  19. FERROUS FUMARATE [Concomitant]
     Active Substance: FERROUS FUMARATE
  20. CETIRIZINE [Concomitant]
     Active Substance: CETIRIZINE HYDROCHLORIDE

REACTIONS (10)
  - Hypothermia [Fatal]
  - Hypotension [Fatal]
  - Chronic obstructive pulmonary disease [Fatal]
  - Diabetes mellitus [Fatal]
  - Multiple organ dysfunction syndrome [Fatal]
  - Lactic acidosis [Fatal]
  - Abdominal distension [Fatal]
  - Diarrhoea [Fatal]
  - Schizophrenia [Fatal]
  - Coeliac disease [Fatal]

NARRATIVE: CASE EVENT DATE: 20200124
